FAERS Safety Report 6417179-2 (Version None)
Quarter: 2009Q4

REPORT INFORMATION
  Report Type: 
  Country: None (occurrence: None)
  Receive Date: 20091028
  Receipt Date: 20091019
  Transmission Date: 20100525
  Serious: No
  Sender: FDA-Public Use
  Company Number: US-JNJFOC-20091006611

PATIENT
  Sex: Female
  Weight: 66.23 kg

DRUGS (9)
  1. FENTANYL TRANSDERMAL SYSTEM [Suspect]
     Indication: BACK PAIN
     Route: 062
  2. SYNTHROID [Concomitant]
     Indication: THYROID DISORDER
     Route: 048
  3. TRICOR [Concomitant]
     Indication: BLOOD CHOLESTEROL ABNORMAL
     Route: 048
  4. DIOVAN HCT [Concomitant]
     Indication: BLOOD PRESSURE
     Dosage: 160 MG/12.5 MG
     Route: 048
  5. LIPITOR [Concomitant]
     Indication: BLOOD CHOLESTEROL ABNORMAL
     Route: 048
  6. LANOXIN [Concomitant]
     Indication: CARDIAC DISORDER
     Route: 048
  7. ASPIRIN [Concomitant]
     Indication: CARDIAC DISORDER
     Route: 048
  8. VITAMIN [Concomitant]
     Indication: VITAMIN SUPPLEMENTATION
     Route: 048
  9. OXYCODONE HCL AND ACETAMINOPHEN [Concomitant]
     Dosage: 5-325 MG
     Route: 048

REACTIONS (1)
  - TREATMENT NONCOMPLIANCE [None]
